FAERS Safety Report 6891984-0 (Version None)
Quarter: 2010Q3

REPORT INFORMATION
  Report Type: 
  Country: None (occurrence: None)
  Receive Date: 20100731
  Receipt Date: 20071226
  Transmission Date: 20110219
  Serious: No
  Sender: FDA-Public Use
  Company Number: US-PFIZER INC-2007078973

PATIENT
  Age: 76 Year
  Sex: Female
  Weight: 57.15 kg

DRUGS (1)
  1. NORVASC [Suspect]

REACTIONS (2)
  - HEART RATE INCREASED [None]
  - PALPITATIONS [None]
